FAERS Safety Report 13209363 (Version 3)
Quarter: 2018Q4

REPORT INFORMATION
  Report Type: Spontaneous
  Country: US (occurrence: US)
  Receive Date: 20170209
  Receipt Date: 20181228
  Transmission Date: 20190204
  Serious: Yes (Hospitalization, Disabling)
  Sender: FDA-Public Use
  Company Number: US-ELI_LILLY_AND_COMPANY-US201702001388

PATIENT
  Sex: Female

DRUGS (7)
  1. HUMULIN R [Suspect]
     Active Substance: INSULIN HUMAN
     Indication: TYPE 2 DIABETES MELLITUS
     Dosage: 22 U, EACH MORNING
     Route: 065
     Dates: start: 2012
  2. INVOKANA [Concomitant]
     Active Substance: CANAGLIFLOZIN
     Indication: PRODUCT USED FOR UNKNOWN INDICATION
  3. HUMULIN R [Suspect]
     Active Substance: INSULIN HUMAN
     Dosage: 26 U, EACH EVENING
     Route: 065
     Dates: start: 2012
  4. HUMULIN R [Suspect]
     Active Substance: INSULIN HUMAN
     Dosage: UNK UNK, PRN
     Route: 065
     Dates: start: 2012
  5. HUMULIN R U-500 [Suspect]
     Active Substance: INSULIN HUMAN
     Dosage: 125 U, DAILY
     Route: 058
  6. HUMULIN R U-500 [Suspect]
     Active Substance: INSULIN HUMAN
     Indication: PRODUCT USED FOR UNKNOWN INDICATION
     Dosage: 100 U, DAILY, EACH MORNING
     Route: 058
  7. STELARA [Suspect]
     Active Substance: USTEKINUMAB
     Indication: PRODUCT USED FOR UNKNOWN INDICATION
     Dosage: UNK, UNKNOWN
     Route: 065

REACTIONS (6)
  - Psoriasis [Not Recovered/Not Resolved]
  - Gastrointestinal disorder [Unknown]
  - Laboratory test abnormal [Unknown]
  - Vasculitis [Unknown]
  - Memory impairment [Not Recovered/Not Resolved]
  - Injection site discomfort [Recovered/Resolved]
